FAERS Safety Report 10098290 (Version 1)
Quarter: 2014Q2

REPORT INFORMATION
  Report Type: Spontaneous
  Country: US (occurrence: None)
  Receive Date: 20140421
  Receipt Date: 20140421
  Transmission Date: 20141212
  Serious: Yes (Other)
  Sender: FDA-Public Use
  Company Number: US-ZYDUS-003055

PATIENT
  Age: 86 Year
  Sex: Female

DRUGS (2)
  1. WARFARIN (WARFARIN) [Suspect]
  2. CALCITONIN (CALCITONIN) [Suspect]

REACTIONS (4)
  - Oedema peripheral [None]
  - Skin necrosis [None]
  - Fat necrosis [None]
  - Calciphylaxis [None]
